FAERS Safety Report 21987959 (Version 1)
Quarter: 2023Q1

REPORT INFORMATION
  Report Type: Spontaneous
  Country: PE (occurrence: None)
  Receive Date: 20230214
  Receipt Date: 20230214
  Transmission Date: 20230417
  Serious: Yes (Other)
  Sender: FDA-Public Use
  Company Number: PE-ROCHE-3281225

PATIENT
  Sex: Male

DRUGS (1)
  1. PULMOZYME [Suspect]
     Active Substance: DORNASE ALFA
     Indication: Cystic fibrosis
     Dosage: 2.500 U/2, 5 - FREQUENCY WAS NOT REPORTED
     Route: 065

REACTIONS (2)
  - Pneumonia pseudomonal [Unknown]
  - Pneumonia bacterial [Unknown]
